FAERS Safety Report 10036488 (Version 1)
Quarter: 2014Q1

REPORT INFORMATION
  Report Type: Spontaneous
  Country: US (occurrence: US)
  Receive Date: 20140326
  Receipt Date: 20140326
  Transmission Date: 20141002
  Serious: Yes (Other)
  Sender: FDA-Public Use
  Company Number: 2014SP001572

PATIENT
  Age: 63 Year
  Sex: Female
  Weight: 96.62 kg

DRUGS (10)
  1. METHOTREXATE [Suspect]
     Indication: PRODUCT USED FOR UNKNOWN INDICATION
  2. CARDIZEM CD [Concomitant]
     Route: 065
  3. HYDRALAZINE [Concomitant]
     Route: 042
  4. SULF [Concomitant]
     Route: 065
  5. GOLD [Concomitant]
     Route: 065
  6. AZATHIOPRINE [Concomitant]
     Route: 065
  7. ARAVA [Concomitant]
     Route: 065
  8. VIOXX [Concomitant]
  9. ASACOL [Concomitant]
  10. FELDENE [Concomitant]

REACTIONS (2)
  - Vasculitis [Unknown]
  - Blood pressure increased [Unknown]
